FAERS Safety Report 8123542-4 (Version None)
Quarter: 2012Q1

REPORT INFORMATION
  Report Type: 
  Country: None (occurrence: None)
  Receive Date: 20120208
  Receipt Date: 20120201
  Transmission Date: 20120608
  Serious: Yes (Hospitalization, Disabling)
  Sender: FDA-Public Use
  Company Number: PHHY2011JP098506

PATIENT
  Age: 83 Year
  Sex: Female

DRUGS (1)
  1. SANDOSTATIN LAR [Suspect]
     Indication: ACROMEGALY
     Dosage: 20 MG, UNK
     Route: 065

REACTIONS (3)
  - BLOOD GLUCOSE INCREASED [None]
  - BLOOD CORTISOL DECREASED [None]
  - GLYCOSYLATED HAEMOGLOBIN INCREASED [None]
